FAERS Safety Report 5374530-2 (Version None)
Quarter: 2007Q2

REPORT INFORMATION
  Report Type: 
  Country: None (occurrence: None)
  Receive Date: 20070627
  Receipt Date: 20060525
  Transmission Date: 20071010
  Serious: Yes (Death)
  Sender: FDA-Public Use
  Company Number: 449821

PATIENT
  Age: 71 Year
  Sex: Female
  Weight: 96.6 kg

DRUGS (8)
  1. XELODA [Suspect]
     Indication: COLON CANCER
     Dosage: 1.5 GRAM 2 PER DAY; ORAL
     Route: 048
     Dates: start: 20060204
  2. AVALIDE [Concomitant]
  3. GLIPIZIDE [Concomitant]
  4. CARDIZEM [Concomitant]
  5. METOPROLOL TARTRATE [Concomitant]
  6. PLAVIX [Concomitant]
  7. LOTENSIN [Concomitant]
  8. ZOCOR [Concomitant]

REACTIONS (3)
  - COLORECTAL CANCER METASTATIC [None]
  - METASTASES TO LIVER [None]
  - METASTASES TO LUNG [None]
